FAERS Safety Report 9988248 (Version 5)
Quarter: 2015Q1

REPORT INFORMATION
  Report Type: Report from Study
  Country: AR (occurrence: AR)
  Receive Date: 20140310
  Receipt Date: 20150325
  Transmission Date: 20150721
  Serious: Yes (Hospitalization)
  Sender: FDA-Public Use
  Company Number: AR-ROCHE-1360036

PATIENT
  Age: 50 Year
  Sex: Female

DRUGS (3)
  1. XOLAIR [Suspect]
     Active Substance: OMALIZUMAB
     Indication: ASTHMA
     Route: 058
     Dates: start: 201307
  2. XOLAIR [Suspect]
     Active Substance: OMALIZUMAB
     Indication: LUNG DISORDER
     Dosage: 150 UKN, BIW,
     Route: 058
  3. XOLAIR [Suspect]
     Active Substance: OMALIZUMAB
     Dosage: ONGOING
     Route: 058

REACTIONS (8)
  - Malaise [Not Recovered/Not Resolved]
  - Drug ineffective [Unknown]
  - Oedema [Not Recovered/Not Resolved]
  - Emphysema [Unknown]
  - Total lung capacity decreased [Recovered/Resolved]
  - Nervousness [Recovering/Resolving]
  - Contusion [Not Recovered/Not Resolved]
  - Skin discolouration [Not Recovered/Not Resolved]

NARRATIVE: CASE EVENT DATE: 201311
